FAERS Safety Report 15627249 (Version 1)
Quarter: 2018Q4

REPORT INFORMATION
  Report Type: Spontaneous
  Country: DE (occurrence: DE)
  Receive Date: 20181116
  Receipt Date: 20181116
  Transmission Date: 20190205
  Serious: Yes (Other)
  Sender: FDA-Public Use
  Company Number: DE-PFIZER INC-2018294687

PATIENT
  Age: 62 Year
  Sex: Male
  Weight: 81 kg

DRUGS (7)
  1. PANTOPRAZOLE [Concomitant]
     Active Substance: PANTOPRAZOLE
     Dosage: UNK
  2. EPLERENON RATIOPHARM [Concomitant]
     Dosage: UNK
  3. CLOPIDOGREL SULFATE [Suspect]
     Active Substance: CLOPIDOGREL BISULFATE
     Dosage: UNK
     Route: 048
  4. PRADAXA [Suspect]
     Active Substance: DABIGATRAN ETEXILATE MESYLATE
     Dosage: UNK
     Route: 048
     Dates: start: 201712
  5. METOHEXAL SUCC [Suspect]
     Active Substance: METOPROLOL SUCCINATE
     Dosage: UNK
     Route: 065
  6. AMIODARONE HCL [Suspect]
     Active Substance: AMIODARONE HYDROCHLORIDE
     Dosage: UNK
     Route: 048
     Dates: start: 201602, end: 201802
  7. TORASEMID [Concomitant]
     Active Substance: TORSEMIDE
     Dosage: UNK

REACTIONS (14)
  - Paraesthesia [Unknown]
  - Pain in extremity [Unknown]
  - Blood pressure increased [Unknown]
  - Hypoaesthesia [Unknown]
  - Fatigue [Unknown]
  - Hallucination [Unknown]
  - Retching [Unknown]
  - Renal pain [Unknown]
  - Coordination abnormal [Unknown]
  - Gait disturbance [Unknown]
  - Tinnitus [Unknown]
  - Back pain [Unknown]
  - Dizziness [Unknown]
  - Asthenia [Unknown]
